FAERS Safety Report 9857046 (Version 2)
Quarter: 2014Q2

REPORT INFORMATION
  Report Type: Spontaneous
  Country: US (occurrence: US)
  Receive Date: 20140130
  Receipt Date: 20140508
  Transmission Date: 20141212
  Serious: Yes (Other)
  Sender: FDA-Public Use
  Company Number: US-PFIZER INC-2014026134

PATIENT
  Age: 52 Year
  Sex: Female
  Weight: 63.49 kg

DRUGS (5)
  1. XANAX [Suspect]
     Indication: POST-TRAUMATIC STRESS DISORDER
     Dosage: 2 MG, 4X/DAY
     Dates: start: 1980, end: 2014
  2. PROPANOLOL HCL [Suspect]
     Indication: HYPERTENSION
     Dosage: 80 MG, 1X/DAY
  3. PROPANOLOL HCL [Suspect]
     Dosage: 80 MG, 2X/DAY
  4. PRILOSEC [Concomitant]
     Indication: GASTROOESOPHAGEAL REFLUX DISEASE
     Dosage: 40 MG, 2X/DAY
  5. DILANTIN [Concomitant]
     Indication: CONVULSION
     Dosage: 100 MG, 3X/DAY
     Dates: start: 1998

REACTIONS (7)
  - Heart valve incompetence [Unknown]
  - Blood pressure increased [Not Recovered/Not Resolved]
  - Vomiting [Not Recovered/Not Resolved]
  - Pyrexia [Not Recovered/Not Resolved]
  - Hot flush [Not Recovered/Not Resolved]
  - Diarrhoea [Not Recovered/Not Resolved]
  - Headache [Not Recovered/Not Resolved]
